FAERS Safety Report 8610215-4 (Version None)
Quarter: 2012Q3

REPORT INFORMATION
  Report Type: 
  Country: None (occurrence: None)
  Receive Date: 20120822
  Receipt Date: 20120817
  Transmission Date: 20120928
  Serious: Yes (Other)
  Sender: FDA-Public Use
  Company Number: US-AMGEN-USASP2012051333

PATIENT
  Age: 57 Year
  Sex: Female

DRUGS (1)
  1. ENBREL [Suspect]
     Indication: RHEUMATOID ARTHRITIS
     Dosage: 50 MG, QWK
     Dates: start: 20120601

REACTIONS (11)
  - DYSPNOEA [None]
  - ARTHRALGIA [None]
  - INJECTION SITE SWELLING [None]
  - VISION BLURRED [None]
  - INJECTION SITE ERYTHEMA [None]
  - HEADACHE [None]
  - INCREASED UPPER AIRWAY SECRETION [None]
  - INJECTION SITE PAIN [None]
  - CHEST DISCOMFORT [None]
  - INJECTION SITE PRURITUS [None]
  - ALOPECIA [None]
